FAERS Safety Report 4976516-6 (Version None)
Quarter: 2006Q2

REPORT INFORMATION
  Report Type: 
  Country: None (occurrence: None)
  Receive Date: 20060410
  Receipt Date: 20060327
  Transmission Date: 20061013
  Serious: Yes (Disabling)
  Sender: FDA-Public Use
  Company Number: 200610092BBE

PATIENT
  Sex: Male

DRUGS (9)
  1. HYPRHO-D [Suspect]
  2. ENGERIX-B [Suspect]
     Indication: IMMUNISATION
     Dates: start: 19960209
  3. ENGERIX-B [Suspect]
     Indication: IMMUNISATION
     Dates: start: 19961111
  4. ENGERIX-B [Suspect]
     Indication: IMMUNISATION
     Dates: start: 19980914
  5. DTPH/TETRAMUNE (DIPHTHERIA/TETANUS/PERTUSSIS/HAEMOPHILUS BV) [Suspect]
     Indication: IMMUNISATION
     Dates: start: 19960325
  6. DTPH/TETRAMUNE (DIPHTHERIA/TETANUS/PERTUSSIS/HAEMOPHILUS BV) [Suspect]
     Indication: IMMUNISATION
     Dates: start: 19960610
  7. DTPH/TETRAMUNE (DIPHTHERIA/TETANUS/PERTUSSIS/HAEMOPHILUS BV) [Suspect]
     Indication: IMMUNISATION
     Dates: start: 19960703
  8. HAEMOPHILUS/HIB TITER (HAEMOPHILUS INFLUENZAE B) [Suspect]
     Indication: IMMUNISATION
     Dates: start: 19970701
  9. DTAP/ACEL-IMMUNE (DIPHTHERIA, TETANUS AND ACELLULAR PERTUSSIS) [Suspect]
     Indication: IMMUNISATION
     Dates: start: 19970701

REACTIONS (8)
  - DISTURBANCE IN SOCIAL BEHAVIOUR [None]
  - DRUG EXPOSURE DURING PREGNANCY [None]
  - GASTROINTESTINAL DISORDER [None]
  - IMMUNE SYSTEM DISORDER [None]
  - LEARNING DISABILITY [None]
  - METAL POISONING [None]
  - MOTOR DYSFUNCTION [None]
  - NEURODEVELOPMENTAL DISORDER [None]
